FAERS Safety Report 22266742 (Version 1)
Quarter: 2023Q2

REPORT INFORMATION
  Report Type: Spontaneous
  Country: BR (occurrence: None)
  Receive Date: 20230428
  Receipt Date: 20230428
  Transmission Date: 20230721
  Serious: Yes (Other)
  Sender: FDA-Public Use
  Company Number: BR-ROCHE-3339226

PATIENT

DRUGS (2)
  1. ALECTINIB [Suspect]
     Active Substance: ALECTINIB
     Indication: Lung neoplasm malignant
     Route: 065
  2. CRIZOTINIB [Concomitant]
     Active Substance: CRIZOTINIB

REACTIONS (2)
  - Lung neoplasm malignant [Unknown]
  - ALK gene rearrangement positive [Unknown]
